FAERS Safety Report 4689267-2 (Version None)
Quarter: 2005Q2

REPORT INFORMATION
  Report Type: 
  Country: None (occurrence: None)
  Receive Date: 20050613
  Receipt Date: 20050311
  Transmission Date: 20051028
  Serious: Yes (Hospitalization)
  Sender: FDA-Public Use
  Company Number: US-MERCK-0503USA02787

PATIENT
  Age: 53 Year
  Sex: Male
  Weight: 164 kg

DRUGS (8)
  1. VIOXX [Suspect]
     Indication: ARTHRALGIA
     Route: 048
     Dates: start: 19990601, end: 20040901
  2. VIOXX [Suspect]
     Route: 048
     Dates: start: 19990601, end: 20040901
  3. VIOXX [Suspect]
     Route: 048
     Dates: start: 20021211
  4. VIOXX [Suspect]
     Indication: BACK PAIN
     Route: 048
     Dates: start: 19990601, end: 20040901
  5. VIOXX [Suspect]
     Route: 048
     Dates: start: 19990601, end: 20040901
  6. VIOXX [Suspect]
     Route: 048
     Dates: start: 20021211
  7. PROZAC [Concomitant]
     Indication: DEPRESSION
     Route: 048
     Dates: start: 19930101
  8. TENORMIN [Concomitant]
     Indication: HYPERTENSION
     Route: 048
     Dates: start: 19850101, end: 20030101

REACTIONS (20)
  - ACQUIRED CARDIAC SEPTAL DEFECT [None]
  - ARTHRALGIA [None]
  - ARTHROSCOPY [None]
  - BLOOD CHOLESTEROL INCREASED [None]
  - BRONCHITIS ACUTE [None]
  - BRONCHOSPASM [None]
  - CARDIAC MURMUR [None]
  - CORONARY ARTERY DISEASE [None]
  - CORONARY ARTERY OCCLUSION [None]
  - CORONARY ARTERY STENOSIS [None]
  - DEPRESSION [None]
  - HYPERTENSION [None]
  - KNEE OPERATION [None]
  - LOBAR PNEUMONIA [None]
  - MENISCUS LESION [None]
  - MYOCARDIAL INFARCTION [None]
  - OEDEMA PERIPHERAL [None]
  - PAIN IN EXTREMITY [None]
  - PNEUMONIA [None]
  - WEIGHT INCREASED [None]
